FAERS Safety Report 25907742 (Version 1)
Quarter: 2025Q4

REPORT INFORMATION
  Report Type: Spontaneous
  Country: EU (occurrence: EU)
  Receive Date: 20251010
  Receipt Date: 20251010
  Transmission Date: 20260118
  Serious: Yes (Hospitalization)
  Sender: OTSUKA
  Company Number: None

PATIENT
  Age: 85 Year
  Sex: Female
  Weight: 80 kg

DRUGS (7)
  1. ABILIFY [Suspect]
     Active Substance: ARIPIPRAZOLE
     Indication: Bipolar I disorder
     Dosage: 10 MG, QD (EVERY 24 HOURS, 5MG 2-0-0)
     Dates: start: 20250227, end: 20250826
  2. ABILIFY [Suspect]
     Active Substance: ARIPIPRAZOLE
     Dosage: UNK
     Route: 065
     Dates: start: 20130307, end: 20161123
  3. QUETIAPINE [Suspect]
     Active Substance: QUETIAPINE
     Indication: Insomnia
     Dosage: 50 MG, QD (25 MG 0-0-1)
     Dates: start: 20190614
  4. LITHIUM CARBONATE [Suspect]
     Active Substance: LITHIUM CARBONATE
     Indication: Bipolar I disorder
     Dosage: 600 MG, QD (400 MG 0.5-0-1)
     Dates: start: 20180123
  5. LITHIUM CARBONATE [Suspect]
     Active Substance: LITHIUM CARBONATE
     Dosage: UNK (REDUCED DOSE)
     Route: 065
  6. UNSPECIFIED INGREDIENT [Suspect]
     Active Substance: UNSPECIFIED INGREDIENT
     Indication: Bipolar I disorder
     Dosage: 100 MG, QD (EVERY 24 HOURS) (0-0-1)
     Dates: start: 20250617, end: 20250826
  7. UNSPECIFIED INGREDIENT [Suspect]
     Active Substance: UNSPECIFIED INGREDIENT
     Dosage: UNK
     Route: 065
     Dates: start: 20170720, end: 20180123

REACTIONS (4)
  - Encephalopathy [Recovered/Resolved]
  - Depressed level of consciousness [Recovered/Resolved]
  - Asterixis [Recovered/Resolved]
  - Facial myokymia [Recovered/Resolved]

NARRATIVE: CASE EVENT DATE: 20250821
